FAERS Safety Report 20657925 (Version 1)
Quarter: 2022Q1

REPORT INFORMATION
  Report Type: Spontaneous
  Country: IN (occurrence: IN)
  Receive Date: 20220331
  Receipt Date: 20220331
  Transmission Date: 20220423
  Serious: Yes (Other)
  Sender: FDA-Public Use
  Company Number: IN-Shilpa Medicare Limited-SML-IN-2022-00294

PATIENT
  Age: 43 Year
  Sex: Female

DRUGS (1)
  1. IMATINIB [Suspect]
     Active Substance: IMATINIB
     Indication: Chronic myeloid leukaemia
     Route: 048

REACTIONS (2)
  - Pityriasis rubra pilaris [Unknown]
  - Splenomegaly [Unknown]
